FAERS Safety Report 19390268 (Version 1)
Quarter: 2021Q2

REPORT INFORMATION
  Report Type: Report from Study
  Country: CA (occurrence: CA)
  Receive Date: 20210608
  Receipt Date: 20210608
  Transmission Date: 20210717
  Serious: Yes (Hospitalization, Other)
  Sender: FDA-Public Use
  Company Number: CA-OTSUKA-2020_032298

PATIENT
  Sex: Female

DRUGS (2)
  1. ASTX727 [Suspect]
     Active Substance: CEDAZURIDINE\DECITABINE
     Dosage: (35 MG DECITABINE AND 100 MG CEDAZURIDINE) FOR 3 DAYS
     Route: 065
  2. ASTX727 [Suspect]
     Active Substance: CEDAZURIDINE\DECITABINE
     Indication: MYELODYSPLASTIC SYNDROME
     Dosage: (35 MG DECITABINE AND 100 MG CEDAZURIDINE)
     Route: 065
     Dates: start: 20201130

REACTIONS (9)
  - Pyrexia [Unknown]
  - White blood cell count decreased [Unknown]
  - Pneumonia [Unknown]
  - Infection [Unknown]
  - Neutrophil count decreased [Unknown]
  - Limb injury [Unknown]
  - Hypotension [Unknown]
  - Product use issue [Unknown]
  - Blood count abnormal [Unknown]
